FAERS Safety Report 4565850-X (Version None)
Quarter: 2005Q1

REPORT INFORMATION
  Report Type: 
  Country: None (occurrence: None)
  Receive Date: 20050131
  Receipt Date: 20050121
  Transmission Date: 20050727
  Serious: Yes (Disabling)
  Sender: FDA-Public Use
  Company Number: US-ABBOTT-05P-163-0287978-00

PATIENT
  Sex: Male

DRUGS (10)
  1. KALETRA [Suspect]
     Indication: HIV INFECTION
     Route: 048
     Dates: start: 20041111
  2. KALETRA [Suspect]
     Dates: start: 20041118
  3. EPZICOM [Suspect]
     Indication: HIV INFECTION
     Route: 048
     Dates: start: 20041111
  4. EPZICOM [Suspect]
     Dates: start: 20041118
  5. BACTRIM [Concomitant]
     Indication: DRUG USE FOR UNKNOWN INDICATION
     Dates: start: 20040925
  6. VENLAFAXINE HCL [Concomitant]
     Indication: DRUG USE FOR UNKNOWN INDICATION
     Dates: start: 20040601
  7. VALACYCLOVIR HCL [Concomitant]
     Indication: DRUG USE FOR UNKNOWN INDICATION
     Dates: start: 20040301
  8. ZOLPIDEM TARTRATE [Concomitant]
     Indication: DRUG USE FOR UNKNOWN INDICATION
     Dates: start: 20000101
  9. KETOCONAZOLE [Concomitant]
     Indication: DRUG USE FOR UNKNOWN INDICATION
     Dates: start: 20041105
  10. CEPHALEXIN [Concomitant]
     Indication: DRUG USE FOR UNKNOWN INDICATION
     Dates: start: 20041115

REACTIONS (6)
  - ASTHENIA [None]
  - DIZZINESS [None]
  - EAR DISORDER [None]
  - FALL [None]
  - UNEVALUABLE EVENT [None]
  - VERTIGO [None]
